FAERS Safety Report 9471530 (Version 3)
Quarter: 2013Q3

REPORT INFORMATION
  Report Type: Spontaneous
  Country: CA (occurrence: CA)
  Receive Date: 20130822
  Receipt Date: 20130829
  Transmission Date: 20140515
  Serious: Yes (Other)
  Sender: FDA-Public Use
  Company Number: CA-PFIZER INC-2013162985

PATIENT
  Age: 53 Year
  Sex: Female
  Weight: 63.5 kg

DRUGS (2)
  1. ALESSE-21 [Suspect]
     Indication: HORMONE REPLACEMENT THERAPY
     Dosage: UNK
     Route: 048
     Dates: start: 2011, end: 20130731
  2. SINGULAIR [Concomitant]
     Indication: PROPHYLAXIS
     Dosage: 10 MG, 1X/DAY AT BEDTIME
     Dates: start: 2010

REACTIONS (13)
  - Haemorrhage [Recovered/Resolved]
  - Depressed level of consciousness [Recovered/Resolved]
  - Nervous system disorder [Recovered/Resolved]
  - Amnesia [Recovered/Resolved]
  - Sleep disorder [Recovered/Resolved]
  - Eating disorder [Recovered/Resolved]
  - Anxiety [Recovered/Resolved]
  - Mood altered [Recovered/Resolved]
  - Migraine [Recovered/Resolved]
  - Myalgia [Recovered/Resolved]
  - Headache [Recovered/Resolved]
  - Drug dose omission [Recovered/Resolved]
  - Off label use [Recovered/Resolved]
